FAERS Safety Report 8815319 (Version 1)
Quarter: 2012Q4

REPORT INFORMATION
  Report Type: 
  Country: BR (occurrence: BR)
  Receive Date: 20120928
  Receipt Date: 20120928
  Transmission Date: 20130627
  Serious: Yes (Other)
  Sender: FDA-Public Use
  Company Number: BR-JNJFOC-20120909212

PATIENT
  Age: 39 Year
  Sex: Female
  Weight: 74 kg

DRUGS (1)
  1. EVRA [Suspect]
     Indication: CONTRACEPTION
     Route: 062
     Dates: start: 2011

REACTIONS (2)
  - Adenomyosis [Not Recovered/Not Resolved]
  - Uterine spasm [Not Recovered/Not Resolved]
